FAERS Safety Report 7584440-8 (Version None)
Quarter: 2011Q2

REPORT INFORMATION
  Report Type: 
  Country: None (occurrence: None)
  Receive Date: 20110630
  Receipt Date: 20110616
  Transmission Date: 20111010
  Serious: Yes (Other)
  Sender: FDA-Public Use
  Company Number: US-BAYER-201037720NA

PATIENT
  Age: 55 Year
  Sex: Female
  Weight: 61.224 kg

DRUGS (7)
  1. CLIMARA [Suspect]
     Indication: HORMONE REPLACEMENT THERAPY
     Dosage: UNK
     Route: 061
     Dates: start: 20100901
  2. VIVELLE-DOT [Concomitant]
     Dosage: UNK
     Route: 061
     Dates: start: 20100101
  3. CLIMARA [Suspect]
     Indication: OSTEOPENIA
     Dosage: UNK
  4. ACYCLOVIR [Concomitant]
  5. CLIMARA [Suspect]
     Dosage: UNK
     Route: 061
     Dates: start: 20100901
  6. PROGESTERONE [Concomitant]
     Route: 062
  7. SUPPLEMENTS [Concomitant]

REACTIONS (3)
  - HOT FLUSH [None]
  - DERMATITIS CONTACT [None]
  - SUICIDAL IDEATION [None]
